FAERS Safety Report 16952263 (Version 1)
Quarter: 2019Q4

REPORT INFORMATION
  Report Type: Report from Study
  Country: FR (occurrence: FR)
  Receive Date: 20191023
  Receipt Date: 20191023
  Transmission Date: 20200122
  Serious: Yes (Death, Hospitalization, Other)
  Sender: FDA-Public Use
  Company Number: PHHY2019FR205069

PATIENT
  Age: 64 Year
  Sex: Male
  Weight: 67 kg

DRUGS (6)
  1. ALDACTONE [Concomitant]
     Active Substance: SPIRONOLACTONE
     Indication: ARRHYTHMIA
     Dosage: 50 MG, QD
     Route: 048
     Dates: start: 20190412
  2. TISAGENLECLEUCEL. [Suspect]
     Active Substance: TISAGENLECLEUCEL
     Indication: DIFFUSE LARGE B-CELL LYMPHOMA
     Dosage: UNK
     Route: 042
     Dates: start: 20190405
  3. CORDARONE [Concomitant]
     Active Substance: AMIODARONE HYDROCHLORIDE
     Indication: ATRIAL FIBRILLATION
  4. LASILIX [Concomitant]
     Active Substance: FUROSEMIDE
     Indication: OEDEMA PERIPHERAL
     Dosage: 80 MG, BID
     Route: 048
     Dates: start: 201903
  5. ALDACTONE [Concomitant]
     Active Substance: SPIRONOLACTONE
     Indication: ATRIAL FIBRILLATION
  6. CORDARONE [Concomitant]
     Active Substance: AMIODARONE HYDROCHLORIDE
     Indication: ARRHYTHMIA
     Dosage: 200 MG, QD
     Route: 048
     Dates: start: 20190406

REACTIONS (6)
  - Diffuse large B-cell lymphoma [Fatal]
  - Pyrexia [Recovered/Resolved]
  - Bone marrow failure [Recovered/Resolved]
  - Malignant neoplasm progression [Fatal]
  - Febrile neutropenia [Unknown]
  - Cytokine release syndrome [Recovered/Resolved]

NARRATIVE: CASE EVENT DATE: 20190411
